FAERS Safety Report 18717492 (Version 2)
Quarter: 2021Q1

REPORT INFORMATION
  Report Type: Spontaneous
  Country: US (occurrence: US)
  Receive Date: 20210108
  Receipt Date: 20210123
  Transmission Date: 20210419
  Serious: No
  Sender: FDA-Public Use
  Company Number: US-EMD SERONO-9210099

PATIENT
  Age: 32 Year
  Sex: Female

DRUGS (2)
  1. MAVENCLAD [Suspect]
     Active Substance: CLADRIBINE
     Indication: MULTIPLE SCLEROSIS
     Dosage: YEAR 1 THERAPY
     Route: 048
     Dates: start: 20190813
  2. MAVENCLAD [Suspect]
     Active Substance: CLADRIBINE
     Dosage: YEAR 2 MONTH 1 : THE PATIENT WAS CURRENTLY ON DAY 3 (AS OF 28 DEC 2020) OF THE MAVENCLAD THERAPY.
     Route: 048
     Dates: start: 202012

REACTIONS (4)
  - Gait inability [Not Recovered/Not Resolved]
  - Pain [Unknown]
  - Aphasia [Not Recovered/Not Resolved]
  - Hypoaesthesia [Unknown]

NARRATIVE: CASE EVENT DATE: 20201226
